FAERS Safety Report 5517142-X (Version None)
Quarter: 2007Q4

REPORT INFORMATION
  Report Type: 
  Country: None (occurrence: None)
  Receive Date: 20071114
  Receipt Date: 20071108
  Transmission Date: 20080405
  Serious: Yes (Life-Threatening, Hospitalization)
  Sender: FDA-Public Use
  Company Number: B0493643A

PATIENT
  Age: 44 Year
  Sex: Male
  Weight: 65 kg

DRUGS (1)
  1. HEPTODIN [Suspect]
     Dosage: 100MG PER DAY
     Route: 048
     Dates: start: 20070916, end: 20070916

REACTIONS (5)
  - ABDOMINAL PAIN [None]
  - ANAPHYLACTIC SHOCK [None]
  - CHEST DISCOMFORT [None]
  - COLD SWEAT [None]
  - DIZZINESS [None]
